FAERS Safety Report 19171481 (Version 5)
Quarter: 2024Q1

REPORT INFORMATION
  Report Type: Report from Study
  Country: US (occurrence: US)
  Receive Date: 20210423
  Receipt Date: 20240110
  Transmission Date: 20240410
  Serious: No
  Sender: FDA-Public Use
  Company Number: US-ACADIA PHARMACEUTICALS INC.-ACA-2021-PIM-001222

PATIENT
  Age: 73 Year
  Sex: Female
  Weight: 39 kg

DRUGS (24)
  1. NUPLAZID [Suspect]
     Active Substance: PIMAVANSERIN TARTRATE
     Indication: Parkinson^s disease
     Dosage: 34 MILLIGRAM, QD
     Route: 048
  2. NUPLAZID [Suspect]
     Active Substance: PIMAVANSERIN TARTRATE
     Dosage: 34 MILLIGRAM, QD
     Route: 048
  3. RASAGILINE MESYLATE [Concomitant]
     Active Substance: RASAGILINE MESYLATE
     Dosage: 0.5 MILLIGRAM
  4. QUETIAPINE FUMARATE [Concomitant]
     Active Substance: QUETIAPINE FUMARATE
     Dosage: 100 MILLIGRAM
  5. MEMANTINE [Concomitant]
     Active Substance: MEMANTINE
     Dosage: 10 MILLIGRAM
  6. LOSARTAN POTASSIUM [Concomitant]
     Active Substance: LOSARTAN POTASSIUM
     Dosage: 100 MILLIGRAM
  7. DUOPA [Concomitant]
     Active Substance: CARBIDOPA\LEVODOPA
     Dosage: 4.63MG/20MG PER ML 100 ML CASS 7S
  8. DONEPEZIL HYDROCHLORIDE [Concomitant]
     Active Substance: DONEPEZIL HYDROCHLORIDE
     Dosage: 10 MILLIGRAM
  9. CITALOPRAM [Concomitant]
     Active Substance: CITALOPRAM HYDROBROMIDE
     Dosage: 10 MILLIGRAM
  10. MYRBETRIQ [Concomitant]
     Active Substance: MIRABEGRON
     Dosage: 25 MILLIGRAM, ER 24 H
  11. SEROQUEL [Concomitant]
     Active Substance: QUETIAPINE FUMARATE
  12. NAMENDA [Concomitant]
     Active Substance: MEMANTINE HYDROCHLORIDE
  13. CHOLECALCIFEROL [Concomitant]
     Active Substance: CHOLECALCIFEROL
     Dosage: 400
  14. CELECOXIB [Concomitant]
     Active Substance: CELECOXIB
  15. CALCIUM\VITAMIN D [Concomitant]
     Active Substance: CALCIUM\VITAMIN D
  16. PROLIA [Concomitant]
     Active Substance: DENOSUMAB
  17. ARICEPT [Concomitant]
     Active Substance: DONEPEZIL HYDROCHLORIDE
  18. MINERALS\VITAMINS [Concomitant]
     Active Substance: MINERALS\VITAMINS
  19. LOSARTAN [Concomitant]
     Active Substance: LOSARTAN
  20. DONEPEZIL [Concomitant]
     Active Substance: DONEPEZIL
     Dosage: 10MG
  21. MEMANTINE [Concomitant]
     Active Substance: MEMANTINE
     Dosage: 10 MG
  22. CITALOPRAM [Concomitant]
     Active Substance: CITALOPRAM HYDROBROMIDE
     Dosage: 10 MG
  23. NOURIANZ [Concomitant]
     Active Substance: ISTRADEFYLLINE
     Dosage: 40 MILLIGRAM
  24. PFIZER-BIONTECH COVID-19 VACCINE [Concomitant]
     Active Substance: TOZINAMERAN

REACTIONS (6)
  - Device occlusion [Recovered/Resolved]
  - Product dose omission issue [Unknown]
  - Gastroenterostomy [Not Recovered/Not Resolved]
  - Product dose omission issue [Not Recovered/Not Resolved]
  - Gastrostomy [Recovered/Resolved]
  - Gastrostomy [Unknown]

NARRATIVE: CASE EVENT DATE: 20210301
